FAERS Safety Report 7544178 (Version 10)
Quarter: 2013Q1

REPORT INFORMATION
  Report Type: Spontaneous
  Country: US (occurrence: US)
  Receive Date: 20100817
  Receipt Date: 20130314
  Transmission Date: 20140127
  Serious: Yes (Other)
  Sender: FDA-Public Use
  Company Number: US-BAYER-201030286NA

PATIENT
  Age: 62 Year
  Sex: Male
  Weight: 124 kg

DRUGS (27)
  1. MAGNEVIST [Suspect]
     Indication: NUCLEAR MAGNETIC RESONANCE IMAGING BRAIN
     Dates: start: 20060117, end: 20060117
  2. OMNISCAN [Suspect]
     Indication: ANGIOGRAM
     Dosage: 40 ML, THEN 50 ML
     Dates: start: 20041109, end: 20041109
  3. OMNISCAN [Suspect]
     Indication: NUCLEAR MAGNETIC RESONANCE IMAGING
  4. GABAPENTIN [Concomitant]
  5. FUROSEMIDE [Concomitant]
  6. FOLIC ACID [Concomitant]
  7. DOXAZOSIN [Concomitant]
  8. SIMVASTATIN [Concomitant]
  9. ATENOLOL [Concomitant]
  10. HYDRALAZINE [Concomitant]
  11. DARVOCET [Concomitant]
     Dosage: 1-2 TABLETS PRN
  12. LYRICA [Concomitant]
     Dosage: 25 MG, 1-2 TABLETS DAILY
  13. ARANESP [Concomitant]
     Route: 042
     Dates: start: 20070521
  14. MAGNESIUM [Concomitant]
  15. CALCIUM [Concomitant]
     Dosage: 500 MG (DAILY DOSE), ,
  16. RENAGEL [SEVELAMER] [Concomitant]
     Dosage: 1 DAILY
  17. EPOGEN [Concomitant]
     Dosage: 1000/ 3 X WEEK DURING DIALYSIS
     Route: 042
  18. CARVEDILOL [Concomitant]
     Indication: HYPERTENSION
     Dosage: UNK
     Dates: start: 2002
  19. MIRTAZAPINE [Concomitant]
     Indication: DEPRESSION
  20. CODEINE SULFATE [Concomitant]
     Indication: PAIN
  21. RENAGEL [SEVELAMER] [Concomitant]
     Dosage: 1 DAILY
  22. METOPROLOL [Concomitant]
  23. NORVASC [Concomitant]
  24. BENICAR [Concomitant]
  25. HYDROCHLOROTHIAZIDE [Concomitant]
  26. DALTEPARIN [Concomitant]
     Dosage: 5000 MIU, UNK
     Route: 058
  27. RENAGEL [SEVELAMER HYDROCHLORIDE] [Concomitant]
     Dosage: 1 DAILY

REACTIONS (26)
  - Nephrogenic systemic fibrosis [None]
  - Erythema [None]
  - Oedema peripheral [None]
  - Skin induration [None]
  - Exfoliative rash [None]
  - Dry skin [None]
  - Skin disorder [None]
  - Skin atrophy [None]
  - Burning sensation [None]
  - Hypoaesthesia [None]
  - Rash [None]
  - Pain in extremity [None]
  - Skin lesion [None]
  - Skin induration [None]
  - Rash pruritic [None]
  - Skin fibrosis [None]
  - Pain in extremity [None]
  - Skin plaque [None]
  - Hyperkeratosis [None]
  - Skin hypertrophy [None]
  - Pain of skin [None]
  - Pain [None]
  - Pruritus [None]
  - Skin ulcer [None]
  - Anxiety [None]
  - Emotional distress [None]
